FAERS Safety Report 4914973-1 (Version None)
Quarter: 2006Q1

REPORT INFORMATION
  Report Type: 
  Country: None (occurrence: None)
  Receive Date: 20060215
  Receipt Date: 20060215
  Transmission Date: 20060701
  Serious: Yes (Hospitalization)
  Sender: FDA-Public Use
  Company Number: None

PATIENT
  Sex: Male

DRUGS (8)
  1. MEGACE [Suspect]
     Indication: POST PROCEDURAL COMPLICATION
     Dosage: 40 MG/ML (20 ML)  QD PO
     Route: 048
     Dates: start: 20060112
  2. MEGACE [Suspect]
     Indication: WEIGHT DECREASED
     Dosage: 40 MG/ML (20 ML)  QD PO
     Route: 048
     Dates: start: 20060112
  3. UROCIT [Concomitant]
  4. HYCODAN [Concomitant]
  5. MUCINEX DM [Concomitant]
  6. INDAPAMINE [Concomitant]
  7. COUMADIN [Concomitant]
  8. DOXYCYCLINE [Concomitant]

REACTIONS (2)
  - CELLULITIS [None]
  - DEVICE RELATED INFECTION [None]
